FAERS Safety Report 16433126 (Version 2)
Quarter: 2023Q1

REPORT INFORMATION
  Report Type: Spontaneous
  Country: US (occurrence: US)
  Receive Date: 20190614
  Receipt Date: 20230329
  Transmission Date: 20230417
  Serious: No
  Sender: FDA-Public Use
  Company Number: US-JNJFOC-20170504733

PATIENT
  Age: 8 Year
  Sex: Male

DRUGS (8)
  1. RISPERDAL [Suspect]
     Active Substance: RISPERIDONE
     Indication: Attention deficit hyperactivity disorder
     Route: 048
  2. RISPERDAL [Suspect]
     Active Substance: RISPERIDONE
     Indication: Aggression
     Route: 048
     Dates: start: 201106, end: 201107
  3. RISPERDAL [Suspect]
     Active Substance: RISPERIDONE
     Indication: Autism spectrum disorder
     Route: 048
     Dates: start: 201107
  4. RISPERDAL [Suspect]
     Active Substance: RISPERIDONE
     Indication: Psychomotor hyperactivity
  5. RISPERDAL [Suspect]
     Active Substance: RISPERIDONE
     Indication: Affective disorder
  6. RISPERDAL [Suspect]
     Active Substance: RISPERIDONE
     Indication: Negativism
  7. RISPERDAL [Suspect]
     Active Substance: RISPERIDONE
     Indication: Disturbance in social behaviour
  8. RISPERIDONE [Suspect]
     Active Substance: RISPERIDONE
     Indication: Product used for unknown indication
     Route: 065

REACTIONS (1)
  - Abnormal weight gain [Recovered/Resolved]

NARRATIVE: CASE EVENT DATE: 20110701
